FAERS Safety Report 26023857 (Version 1)
Quarter: 2025Q4

REPORT INFORMATION
  Report Type: Spontaneous
  Country: CN (occurrence: CN)
  Receive Date: 20251111
  Receipt Date: 20251111
  Transmission Date: 20260117
  Serious: Yes (Hospitalization)
  Sender: CHEPLAPHARM
  Company Number: CN-CHEPLA-2025012643

PATIENT
  Age: 63 Year
  Sex: Male
  Weight: 65 kg

DRUGS (4)
  1. OLANZAPINE [Suspect]
     Active Substance: OLANZAPINE
     Indication: Depression
     Dosage: 2-3 TABLETS OF OLANZAPINE
     Route: 048
     Dates: start: 20250916, end: 20250916
  2. CLONAZEPAM [Suspect]
     Active Substance: CLONAZEPAM
     Dosage: 2-3 TABLETS OF CLONAZEPAM
     Route: 048
     Dates: start: 20250916, end: 20250916
  3. MIRTAZAPINE [Suspect]
     Active Substance: MIRTAZAPINE
     Dosage: 2-3 TABLETS OF MIRTAZAPINE
     Route: 048
     Dates: start: 20250916, end: 20250916
  4. ESTAZOLAM [Suspect]
     Active Substance: ESTAZOLAM
     Dosage: 40 TABLETS A DAY?DAILY DOSE: 40 DOSAGE FORM
     Route: 048
     Dates: start: 20250916, end: 20250916

REACTIONS (4)
  - Intentional overdose [Recovering/Resolving]
  - Loss of consciousness [Recovering/Resolving]
  - Somnolence [Recovering/Resolving]
  - Dysarthria [Unknown]

NARRATIVE: CASE EVENT DATE: 20250901
